FAERS Safety Report 6518174-5 (Version None)
Quarter: 2009Q4

REPORT INFORMATION
  Report Type: 
  Country: None (occurrence: None)
  Receive Date: 20091223
  Receipt Date: 20091223
  Transmission Date: 20100525
  Serious: Yes (Hospitalization)
  Sender: FDA-Public Use
  Company Number: None

PATIENT
  Age: 59 Year
  Sex: Male
  Weight: 144 kg

DRUGS (17)
  1. CUBICIN [Suspect]
     Indication: STAPHYLOCOCCAL INFECTION
     Dosage: 875 MG DAILY IV
     Route: 042
     Dates: start: 20091201, end: 20091214
  2. LOVASTATIN [Suspect]
     Indication: BLOOD CHOLESTEROL INCREASED
     Dosage: 80MG DAILY PO
     Route: 048
     Dates: start: 20070101, end: 20091214
  3. DAPTOMYCIN [Concomitant]
  4. ATIVAN [Concomitant]
  5. MAGNESIUM OXIDE [Concomitant]
  6. FLUOXETINE [Concomitant]
  7. NIFEDIPINE [Concomitant]
  8. LOVASTATIN [Concomitant]
  9. IRON SULFATETHIAMIN COMPOUND TAB [Concomitant]
  10. FLOMAX [Concomitant]
  11. METOPROLOL TARTRATE [Concomitant]
  12. CLARITIN [Concomitant]
  13. ASPIRIN [Concomitant]
  14. LASIX [Concomitant]
  15. POTASSIUM [Concomitant]
  16. LISINOPRIL [Concomitant]
  17. VICODIN [Concomitant]

REACTIONS (5)
  - BLOOD CREATINE PHOSPHOKINASE INCREASED [None]
  - IMPAIRED HEALING [None]
  - KNEE ARTHROPLASTY [None]
  - PAIN [None]
  - WOUND SECRETION [None]
